FAERS Safety Report 25449933 (Version 1)
Quarter: 2025Q2

REPORT INFORMATION
  Report Type: Spontaneous
  Country: CN (occurrence: CN)
  Receive Date: 20250618
  Receipt Date: 20250618
  Transmission Date: 20250717
  Serious: Yes (Other)
  Sender: BAUSCH AND LOMB
  Company Number: CN-MLMSERVICE-20250604-PI532752-00117-1

PATIENT
  Age: 23 Year
  Sex: Male
  Weight: 63.2 kg

DRUGS (29)
  1. DEXAMETHASONE [Suspect]
     Active Substance: DEXAMETHASONE
     Indication: Epstein-Barr virus associated lymphoma
     Route: 065
  2. DEXAMETHASONE [Suspect]
     Active Substance: DEXAMETHASONE
     Indication: Activated PI3 kinase delta syndrome
     Route: 065
  3. DEXAMETHASONE [Suspect]
     Active Substance: DEXAMETHASONE
     Indication: Diffuse large B-cell lymphoma
  4. CYCLOPHOSPHAMIDE [Suspect]
     Active Substance: CYCLOPHOSPHAMIDE
     Indication: Epstein-Barr virus associated lymphoma
     Route: 065
  5. CYCLOPHOSPHAMIDE [Suspect]
     Active Substance: CYCLOPHOSPHAMIDE
     Indication: Diffuse large B-cell lymphoma
  6. CYCLOPHOSPHAMIDE [Suspect]
     Active Substance: CYCLOPHOSPHAMIDE
     Indication: Activated PI3 kinase delta syndrome
  7. DOXORUBICIN [Suspect]
     Active Substance: DOXORUBICIN
     Indication: Epstein-Barr virus associated lymphoma
     Route: 065
  8. DOXORUBICIN [Suspect]
     Active Substance: DOXORUBICIN
     Indication: Diffuse large B-cell lymphoma
  9. DOXORUBICIN [Suspect]
     Active Substance: DOXORUBICIN
     Indication: Activated PI3 kinase delta syndrome
  10. VINCRISTINE [Suspect]
     Active Substance: VINCRISTINE
     Indication: Epstein-Barr virus associated lymphoma
     Route: 065
  11. VINCRISTINE [Suspect]
     Active Substance: VINCRISTINE
     Indication: Diffuse large B-cell lymphoma
  12. VINCRISTINE [Suspect]
     Active Substance: VINCRISTINE
     Indication: Activated PI3 kinase delta syndrome
  13. PREDNISONE [Suspect]
     Active Substance: PREDNISONE
     Indication: Epstein-Barr virus associated lymphoma
     Route: 065
  14. PREDNISONE [Suspect]
     Active Substance: PREDNISONE
     Indication: Diffuse large B-cell lymphoma
  15. PREDNISONE [Suspect]
     Active Substance: PREDNISONE
     Indication: Activated PI3 kinase delta syndrome
  16. RITUXIMAB [Suspect]
     Active Substance: RITUXIMAB
     Indication: Epstein-Barr virus associated lymphoma
     Route: 065
  17. RITUXIMAB [Suspect]
     Active Substance: RITUXIMAB
     Indication: Diffuse large B-cell lymphoma
  18. RITUXIMAB [Suspect]
     Active Substance: RITUXIMAB
     Indication: Activated PI3 kinase delta syndrome
  19. ETOPOSIDE [Suspect]
     Active Substance: ETOPOSIDE
     Indication: Epstein-Barr virus associated lymphoma
     Route: 065
  20. ETOPOSIDE [Suspect]
     Active Substance: ETOPOSIDE
     Indication: Diffuse large B-cell lymphoma
  21. ETOPOSIDE [Suspect]
     Active Substance: ETOPOSIDE
     Indication: Activated PI3 kinase delta syndrome
  22. PIRARUBICIN [Suspect]
     Active Substance: PIRARUBICIN
     Indication: Epstein-Barr virus associated lymphoma
     Route: 065
  23. PIRARUBICIN [Suspect]
     Active Substance: PIRARUBICIN
     Indication: Diffuse large B-cell lymphoma
  24. PIRARUBICIN [Suspect]
     Active Substance: PIRARUBICIN
     Indication: Activated PI3 kinase delta syndrome
  25. VINDESINE [Suspect]
     Active Substance: VINDESINE
     Indication: Epstein-Barr virus associated lymphoma
     Route: 065
  26. VINDESINE [Suspect]
     Active Substance: VINDESINE
     Indication: Diffuse large B-cell lymphoma
  27. VINDESINE [Suspect]
     Active Substance: VINDESINE
     Indication: Activated PI3 kinase delta syndrome
  28. NIRMATRELVIR [Concomitant]
     Active Substance: NIRMATRELVIR
     Indication: COVID-19
  29. RITONAVIR [Concomitant]
     Active Substance: RITONAVIR
     Indication: COVID-19

REACTIONS (2)
  - Myelosuppression [Unknown]
  - Therapy partial responder [Unknown]
